FAERS Safety Report 14566849 (Version 1)
Quarter: 2018Q1

REPORT INFORMATION
  Report Type: Spontaneous
  Country: US (occurrence: US)
  Receive Date: 20180222
  Receipt Date: 20180222
  Transmission Date: 20180509
  Serious: Yes (Other)
  Sender: FDA-Public Use
  Company Number: None

PATIENT
  Age: 70 Year
  Sex: Female
  Weight: 52.65 kg

DRUGS (12)
  1. BENEFIBER [Concomitant]
     Active Substance: STARCH, WHEAT
  2. PROMETHAZINE [Concomitant]
     Active Substance: PROMETHAZINE\PROMETHAZINE HYDROCHLORIDE
  3. VITAMIN C [Concomitant]
     Active Substance: ASCORBIC ACID
  4. CAPECITABINE. [Suspect]
     Active Substance: CAPECITABINE
     Indication: BREAST CANCER
     Route: 048
     Dates: start: 20171005, end: 20180222
  5. MORPHINE ER [Concomitant]
     Active Substance: MORPHINE
  6. CALCIUM CARBONATE. [Concomitant]
     Active Substance: CALCIUM CARBONATE
  7. PRAVASTATIN. [Concomitant]
     Active Substance: PRAVASTATIN
  8. ONDANSETRON [Concomitant]
     Active Substance: ONDANSETRON
  9. GABAPENTIN. [Concomitant]
     Active Substance: GABAPENTIN
  10. VITAMIN D3 [Concomitant]
     Active Substance: CHOLECALCIFEROL
  11. METOPROLOL. [Concomitant]
     Active Substance: METOPROLOL
  12. NORCO [Concomitant]
     Active Substance: ACETAMINOPHEN\HYDROCODONE BITARTRATE

REACTIONS (1)
  - Disease progression [None]
